FAERS Safety Report 17199311 (Version 1)
Quarter: 2019Q4

REPORT INFORMATION
  Report Type: Spontaneous
  Country: BR (occurrence: BR)
  Receive Date: 20191225
  Receipt Date: 20191225
  Transmission Date: 20200122
  Serious: Yes (Other)
  Sender: FDA-Public Use
  Company Number: NVSC2019BR076572

PATIENT
  Sex: Female

DRUGS (2)
  1. DIOVAN HCT [Suspect]
     Active Substance: HYDROCHLOROTHIAZIDE\VALSARTAN
     Indication: BLOOD PRESSURE ABNORMAL
     Dosage: UNK
     Route: 065
  2. DIOVAN HCT [Suspect]
     Active Substance: HYDROCHLOROTHIAZIDE\VALSARTAN
     Dosage: UNK
     Route: 065

REACTIONS (12)
  - Diabetes mellitus [Unknown]
  - Blood pressure decreased [Unknown]
  - Crying [Unknown]
  - Pneumonia [Recovering/Resolving]
  - Nervousness [Unknown]
  - Dyspnoea [Unknown]
  - Hypoacusis [Unknown]
  - Back pain [Unknown]
  - Osteoporosis [Unknown]
  - Productive cough [Recovering/Resolving]
  - Product dispensing error [Unknown]
  - Emotional disorder [Unknown]
